FAERS Safety Report 8698910 (Version 2)
Quarter: 2013Q4

REPORT INFORMATION
  Report Type: Report from Study
  Country: JP (occurrence: JP)
  Receive Date: 20120802
  Receipt Date: 20131101
  Transmission Date: 20140711
  Serious: Yes (Other)
  Sender: FDA-Public Use
  Company Number: JP-009507513-1207JPN011088

PATIENT
  Age: 62 Year
  Sex: Female
  Weight: 43 kg

DRUGS (10)
  1. PEGINTRON [Suspect]
     Indication: HEPATITIS C
     Dosage: 1.41G/KG/WEEK
     Route: 058
     Dates: start: 20120510
  2. REBETOL [Suspect]
     Indication: HEPATITIS C
     Route: 048
     Dates: start: 20120510
  3. TELAVIC [Suspect]
     Indication: HEPATITIS C
     Route: 048
     Dates: start: 20120510
  4. URSO [Concomitant]
     Indication: HEPATITIS C
     Route: 048
     Dates: end: 20120425
  5. ALEROFF [Concomitant]
     Indication: PROPHYLAXIS
     Route: 048
     Dates: start: 20120413, end: 20120510
  6. FENILENE [Concomitant]
     Indication: PROPHYLAXIS
     Route: 048
     Dates: start: 20120418, end: 201204
  7. SELTEPNON [Concomitant]
     Indication: PROPHYLAXIS
     Route: 048
     Dates: start: 20120418
  8. EPINEPHRINE HYDROCHLORIDE [Concomitant]
     Indication: PROPHYLAXIS
     Route: 048
     Dates: start: 20120511
  9. MYSER (DIFLUPREDNATE) [Concomitant]
     Indication: DRUG ERUPTION
     Route: 061
     Dates: start: 20120514
  10. PREDONINE [Concomitant]
     Indication: DRUG ERUPTION
     Route: 048
     Dates: start: 20120515, end: 20120523

REACTIONS (1)
  - Rash [Unknown]
